FAERS Safety Report 7854029-1 (Version None)
Quarter: 2011Q4

REPORT INFORMATION
  Report Type: 
  Country: None (occurrence: None)
  Receive Date: 20111026
  Receipt Date: 20111024
  Transmission Date: 20120403
  Serious: No
  Sender: FDA-Public Use
  Company Number: US-PFIZER INC-2011219879

PATIENT
  Sex: Female

DRUGS (4)
  1. ZOLOFT [Interacting]
     Indication: ANXIETY
  2. VITAMIN B COMPLEX CAP [Interacting]
     Dosage: UNK
  3. ZOLOFT [Interacting]
     Indication: IRRITABLE BOWEL SYNDROME
     Dosage: UNK
  4. ZOLOFT [Suspect]
     Indication: SOCIAL PHOBIA
     Dosage: 25 MG, UNK
     Route: 048
     Dates: start: 20110901

REACTIONS (8)
  - FATIGUE [None]
  - INSOMNIA [None]
  - BACK PAIN [None]
  - HEADACHE [None]
  - DRUG EFFECT DECREASED [None]
  - NAUSEA [None]
  - MIGRAINE [None]
  - DRUG INTERACTION [None]
